FAERS Safety Report 14419857 (Version 1)
Quarter: 2018Q1

REPORT INFORMATION
  Report Type: Spontaneous
  Country: US (occurrence: US)
  Receive Date: 20180121
  Receipt Date: 20180121
  Transmission Date: 20180509
  Serious: Yes (Disabling, Other)
  Sender: FDA-Public Use
  Company Number: None

PATIENT
  Age: 56 Year
  Sex: Female
  Weight: 80.1 kg

DRUGS (15)
  1. UBIQUINOL [Concomitant]
     Active Substance: UBIQUINOL
  2. PSYLLIUM [Concomitant]
     Active Substance: PLANTAGO SEED
  3. ADVIL [Concomitant]
     Active Substance: IBUPROFEN
  4. METOPROLOL. [Concomitant]
     Active Substance: METOPROLOL
  5. VITAMIN D [Concomitant]
     Active Substance: CHOLECALCIFEROL
  6. MAGNESIUM [Concomitant]
     Active Substance: MAGNESIUM
  7. CYMBALTA [Concomitant]
     Active Substance: DULOXETINE HYDROCHLORIDE
  8. MULTIVITAMIN [Concomitant]
     Active Substance: VITAMINS
  9. RED YEAST RICE [Concomitant]
     Active Substance: DIETARY SUPPLEMENT
  10. HCTZ [Concomitant]
     Active Substance: HYDROCHLOROTHIAZIDE
  11. OMEGA 3 [Concomitant]
     Active Substance: OMEGA-3 FATTY ACIDS
  12. ASPIRIN. [Concomitant]
     Active Substance: ASPIRIN
  13. DULOXETINE. [Suspect]
     Active Substance: DULOXETINE
     Indication: DEPRESSION
     Dosage: ?          QUANTITY:1 CAPSULE(S);?
     Route: 048
  14. TYLENOL [Concomitant]
     Active Substance: ACETAMINOPHEN
  15. TRAMADOL. [Concomitant]
     Active Substance: TRAMADOL

REACTIONS (11)
  - Pain in extremity [None]
  - Muscle swelling [None]
  - Joint swelling [None]
  - Musculoskeletal pain [None]
  - Arthralgia [None]
  - Withdrawal syndrome [None]
  - Hyperhidrosis [None]
  - Fatigue [None]
  - Myalgia [None]
  - Headache [None]
  - Burning sensation [None]

NARRATIVE: CASE EVENT DATE: 20141002
